FAERS Safety Report 7043276-7 (Version None)
Quarter: 2010Q4

REPORT INFORMATION
  Report Type: 
  Country: None (occurrence: None)
  Receive Date: 20101013
  Receipt Date: 20100719
  Transmission Date: 20110411
  Serious: No
  Sender: FDA-Public Use
  Company Number: US-ASTRAZENECA-2010SE33537

PATIENT
  Sex: Male

DRUGS (3)
  1. SYMBICORT [Suspect]
     Route: 055
  2. ADVAIR DISKUS 100/50 [Concomitant]
  3. SPRIVA [Concomitant]

REACTIONS (3)
  - BRONCHITIS [None]
  - MEDICATION ERROR [None]
  - OXYGEN SATURATION DECREASED [None]
